FAERS Safety Report 4947097-8 (Version None)
Quarter: 2006Q1

REPORT INFORMATION
  Report Type: 
  Country: None (occurrence: None)
  Receive Date: 20060314
  Receipt Date: 20060306
  Transmission Date: 20060701
  Serious: Yes (Hospitalization, Other)
  Sender: FDA-Public Use
  Company Number: HQWYE645703FEB06

PATIENT
  Age: 71 Year
  Sex: Male
  Weight: 63.3 kg

DRUGS (3)
  1. MYLOTARG [Suspect]
     Indication: ACUTE MYELOID LEUKAEMIA
     Dosage: 9 MG/M^2 (17 MG), INTRAVENOUS; 9MG/M^2 (17 MG); INTRAVENOUS
     Route: 042
     Dates: start: 20060104, end: 20060104
  2. MYLOTARG [Suspect]
     Indication: ACUTE MYELOID LEUKAEMIA
     Dosage: 9 MG/M^2 (17 MG), INTRAVENOUS; 9MG/M^2 (17 MG); INTRAVENOUS
     Route: 042
     Dates: start: 20060117, end: 20060117
  3. IMIPENEM [Concomitant]

REACTIONS (3)
  - EPIDIDYMITIS [None]
  - INFECTION [None]
  - RASH [None]
